FAERS Safety Report 6779932-5 (Version None)
Quarter: 2010Q2

REPORT INFORMATION
  Report Type: 
  Country: None (occurrence: None)
  Receive Date: 20100618
  Receipt Date: 20100607
  Transmission Date: 20101027
  Serious: Yes (Other)
  Sender: FDA-Public Use
  Company Number: US-SHIRE-ALL1-2010-03256

PATIENT

DRUGS (3)
  1. INTUNIV [Suspect]
     Indication: ATTENTION DEFICIT/HYPERACTIVITY DISORDER
     Dosage: 1 MG, 1X/DAY:QD
     Route: 048
     Dates: start: 20100526, end: 20100601
  2. INTUNIV [Suspect]
     Dosage: 2 MG, 1X/DAY:QD
     Route: 048
     Dates: start: 20100602
  3. FOCALIN [Concomitant]
     Indication: ATTENTION DEFICIT/HYPERACTIVITY DISORDER
     Dosage: 45 MG, 1X/DAY:QD
     Route: 048
     Dates: start: 20080101

REACTIONS (6)
  - DECREASED APPETITE [None]
  - DEHYDRATION [None]
  - HYPOAESTHESIA [None]
  - PALLOR [None]
  - PRESYNCOPE [None]
  - SOCIAL AVOIDANT BEHAVIOUR [None]
